FAERS Safety Report 7085889-2 (Version None)
Quarter: 2010Q4

REPORT INFORMATION
  Report Type: 
  Country: None (occurrence: None)
  Receive Date: 20101105
  Receipt Date: 20101028
  Transmission Date: 20110411
  Serious: Yes (Hospitalization)
  Sender: FDA-Public Use
  Company Number: DE-ROCHE-738725

PATIENT
  Sex: Female
  Weight: 57 kg

DRUGS (4)
  1. BEVACIZUMAB [Suspect]
     Route: 042
     Dates: start: 20101014, end: 20101026
  2. OXALIPLATIN [Suspect]
     Route: 042
     Dates: start: 20101014, end: 20101026
  3. FOLINIC ACID [Suspect]
     Route: 042
     Dates: start: 20101014, end: 20101027
  4. FLUOROURACIL [Suspect]
     Dosage: 400 MG/M2 AS BOLUS AND 600 MG/M2 AS INFUSION
     Route: 042
     Dates: start: 20101014, end: 20101027

REACTIONS (1)
  - HOSPITALISATION [None]
